FAERS Safety Report 13852812 (Version 1)
Quarter: 2017Q3

REPORT INFORMATION
  Report Type: Spontaneous
  Country: US (occurrence: US)
  Receive Date: 20170809
  Receipt Date: 20170809
  Transmission Date: 20171127
  Serious: No
  Sender: FDA-Public Use
  Company Number: US-ROCHE-516521

PATIENT
  Age: 84 Year
  Sex: Female
  Weight: 56.2 kg

DRUGS (4)
  1. CALCIUM [Concomitant]
     Active Substance: CALCIUM
     Route: 065
  2. MULTIVITAMIN NOS [Concomitant]
     Active Substance: VITAMINS
     Dosage: DRUG REPORTED AS : MULTIVITAMINS
     Route: 065
  3. VITAMIN [Concomitant]
     Active Substance: VITAMINS
     Dosage: DRUG: VITAMINS
     Route: 065
  4. BONIVA [Suspect]
     Active Substance: IBANDRONATE SODIUM
     Indication: OSTEOPOROSIS
     Dosage: THERAPY DURATION REPORTED AS 4 YEARS.
     Route: 048
     Dates: start: 20060601, end: 20090501

REACTIONS (8)
  - Eructation [Not Recovered/Not Resolved]
  - Eructation [Unknown]
  - Chest discomfort [Not Recovered/Not Resolved]
  - Dysphagia [Not Recovered/Not Resolved]
  - Poor peripheral circulation [Unknown]
  - Impaired healing [Recovered/Resolved]
  - Pain in extremity [Unknown]
  - Oesophageal disorder [Not Recovered/Not Resolved]

NARRATIVE: CASE EVENT DATE: 200708
